FAERS Safety Report 8273601-0 (Version None)
Quarter: 2012Q2

REPORT INFORMATION
  Report Type: 
  Country: None (occurrence: None)
  Receive Date: 20120411
  Receipt Date: 20120130
  Transmission Date: 20120825
  Serious: No
  Sender: FDA-Public Use
  Company Number: US-TEVA-320137USA

PATIENT
  Sex: Female

DRUGS (4)
  1. NUVIGIL [Suspect]
     Route: 048
  2. CYMBALTA [Concomitant]
  3. VALIUM [Concomitant]
  4. PROZAC [Concomitant]

REACTIONS (1)
  - DRUG INEFFECTIVE [None]
